FAERS Safety Report 24187017 (Version 1)
Quarter: 2024Q3

REPORT INFORMATION
  Report Type: Spontaneous
  Country: PT (occurrence: PT)
  Receive Date: 20240808
  Receipt Date: 20240808
  Transmission Date: 20241017
  Serious: Yes (Other)
  Sender: AUROBINDO
  Company Number: PT-HIKMA PHARMACEUTICALS-PT-H14001-24-07054

PATIENT
  Age: 48 Year
  Sex: Female

DRUGS (2)
  1. OXALIPLATIN [Suspect]
     Active Substance: OXALIPLATIN
     Indication: Rectal adenocarcinoma
     Dosage: UNK (UNKNOWN)
     Route: 065
  2. CAPECITABINE [Suspect]
     Active Substance: CAPECITABINE
     Indication: Rectal adenocarcinoma
     Dosage: UNK (UNKNOWN)
     Route: 065

REACTIONS (3)
  - Febrile neutropenia [Unknown]
  - Fungal infection [Unknown]
  - Gastrointestinal inflammation [Unknown]
